FAERS Safety Report 17821918 (Version 1)
Quarter: 2020Q2

REPORT INFORMATION
  Report Type: Spontaneous
  Country: US (occurrence: US)
  Receive Date: 20200526
  Receipt Date: 20200526
  Transmission Date: 20200714
  Serious: Yes (Hospitalization)
  Sender: FDA-Public Use
  Company Number: US-BEH-2020117759

PATIENT
  Age: 63 Year
  Sex: Female

DRUGS (24)
  1. NASACORT [Concomitant]
     Active Substance: TRIAMCINOLONE ACETONIDE
  2. HYDROCHLOROTHIAZID [Concomitant]
     Active Substance: HYDROCHLOROTHIAZIDE
  3. PAROXETINE. [Concomitant]
     Active Substance: PAROXETINE
  4. KOMBIGLYZE XR [Concomitant]
     Active Substance: METFORMIN HYDROCHLORIDE\SAXAGLIPTIN HYDROCHLORIDE
  5. VITAMIN D [ERGOCALCIFEROL] [Concomitant]
     Active Substance: ERGOCALCIFEROL
  6. CRESTOR [Concomitant]
     Active Substance: ROSUVASTATIN CALCIUM
  7. MOMETASONE [Concomitant]
     Active Substance: MOMETASONE
  8. GLIPIZIDE. [Concomitant]
     Active Substance: GLIPIZIDE
  9. DULERA [Concomitant]
     Active Substance: FORMOTEROL FUMARATE DIHYDRATE\MOMETASONE FUROATE
  10. SYNTHROID [Concomitant]
     Active Substance: LEVOTHYROXINE SODIUM
  11. QVAR [Concomitant]
     Active Substance: BECLOMETHASONE DIPROPIONATE
  12. CLARITIN [Concomitant]
     Active Substance: LORATADINE
  13. HAEGARDA [Suspect]
     Active Substance: HUMAN C1-ESTERASE INHIBITOR
     Indication: ASTHMA
     Dosage: 2000 INTERNATIONAL UNIT, BIW
     Route: 058
     Dates: start: 20191102
  14. MONTELUKAST [Concomitant]
     Active Substance: MONTELUKAST SODIUM
  15. JARDIANCE [Concomitant]
     Active Substance: EMPAGLIFLOZIN
  16. FOLIC ACID. [Concomitant]
     Active Substance: FOLIC ACID
  17. ALBUTEROL [SALBUTAMOL] [Concomitant]
     Active Substance: ALBUTEROL
  18. HAEGARDA [Suspect]
     Active Substance: HUMAN C1-ESTERASE INHIBITOR
     Indication: PROPHYLAXIS
  19. PAXIL [PIROXICAM] [Concomitant]
     Active Substance: PIROXICAM
  20. ASPIRIN [ACETYLSALICYLIC ACID] [Concomitant]
     Active Substance: ASPIRIN
  21. IRBESARTAN. [Concomitant]
     Active Substance: IRBESARTAN
  22. FISH OIL [Concomitant]
     Active Substance: FISH OIL
  23. VITAMIN E [Concomitant]
     Active Substance: .ALPHA.-TOCOPHEROL
  24. COQ10 [UBIDECARENONE] [Concomitant]
     Active Substance: UBIDECARENONE

REACTIONS (5)
  - Brain operation [Not Recovered/Not Resolved]
  - Product use in unapproved indication [Unknown]
  - Product preparation issue [Unknown]
  - No adverse event [Unknown]
  - Device issue [Unknown]

NARRATIVE: CASE EVENT DATE: 20200520
